FAERS Safety Report 8144438-8 (Version None)
Quarter: 2012Q1

REPORT INFORMATION
  Report Type: 
  Country: None (occurrence: None)
  Receive Date: 20120217
  Receipt Date: 20120207
  Transmission Date: 20120608
  Serious: Yes (Hospitalization)
  Sender: FDA-Public Use
  Company Number: US-ROCHE-1040811

PATIENT
  Age: 59 Year
  Sex: Female
  Weight: 86 kg

DRUGS (9)
  1. AVASTIN [Suspect]
     Indication: FALLOPIAN TUBE CANCER
  2. CISPLATIN [Suspect]
     Indication: MALIGNANT PERITONEAL NEOPLASM
     Dosage: ON DAY 2
     Route: 033
     Dates: start: 20111108
  3. CISPLATIN [Suspect]
     Indication: FALLOPIAN TUBE CANCER
  4. AVASTIN [Suspect]
     Indication: MALIGNANT PERITONEAL NEOPLASM
  5. PACLITAXEL [Suspect]
     Indication: OVARIAN CANCER
     Dosage: OVER 3 HOURS ON DAY 1
     Route: 042
     Dates: start: 20111108
  6. PACLITAXEL [Suspect]
     Indication: MALIGNANT PERITONEAL NEOPLASM
     Dosage: ON DAY 8
     Route: 033
  7. CISPLATIN [Suspect]
     Indication: OVARIAN CANCER
  8. AVASTIN [Suspect]
     Indication: OVARIAN CANCER
     Dosage: OVER 30-90 MIN ON DAY 1, BEGINNING WITH CYCLE 2
     Route: 042
     Dates: start: 20111108
  9. PACLITAXEL [Suspect]
     Indication: FALLOPIAN TUBE CANCER

REACTIONS (2)
  - EMBOLISM [None]
  - SUPERIOR VENA CAVA SYNDROME [None]
